FAERS Safety Report 25327337 (Version 1)
Quarter: 2025Q2

REPORT INFORMATION
  Report Type: Other
  Country: US (occurrence: US)
  Receive Date: 20250517
  Receipt Date: 20250517
  Transmission Date: 20250717
  Serious: Yes (Life-Threatening, Hospitalization, Other)
  Sender: DEXCEL LTD.
  Company Number: US-DEXPHARM-2025-2979

PATIENT
  Age: 74 Year
  Sex: Male

DRUGS (3)
  1. LEVOPHED [Concomitant]
     Active Substance: NOREPINEPHRINE BITARTRATE
  2. PANTOPRAZOLE [Suspect]
     Active Substance: PANTOPRAZOLE
  3. FIDAXOMICIN [Concomitant]
     Active Substance: FIDAXOMICIN
     Indication: Clostridium difficile infection

REACTIONS (5)
  - Ileus [Unknown]
  - Abdominal pain lower [Unknown]
  - Diarrhoea [Unknown]
  - Enteritis [Unknown]
  - Abdominal sepsis [Unknown]
